FAERS Safety Report 21381650 (Version 1)
Quarter: 2022Q3

REPORT INFORMATION
  Report Type: Spontaneous
  Country: US (occurrence: None)
  Receive Date: 20220926
  Receipt Date: 20220926
  Transmission Date: 20221027
  Serious: No
  Sender: FDA-Public Use
  Company Number: None

PATIENT
  Age: 56 Year
  Sex: Female

DRUGS (1)
  1. LYBALVI [Suspect]
     Active Substance: OLANZAPINE\SAMIDORPHAN L-MALATE

REACTIONS (2)
  - Drug ineffective [None]
  - Drug intolerance [None]

NARRATIVE: CASE EVENT DATE: 20220926
